FAERS Safety Report 5989681-9 (Version None)
Quarter: 2008Q4

REPORT INFORMATION
  Report Type: 
  Country: None (occurrence: None)
  Receive Date: 20081208
  Receipt Date: 20081126
  Transmission Date: 20090506
  Serious: Yes (Disabling)
  Sender: FDA-Public Use
  Company Number: 2008SP023919

PATIENT
  Sex: Male

DRUGS (2)
  1. AERINAZE (DESLORATADINE W/ PSEUDOEPHEDRINE) [Suspect]
     Indication: RHINITIS ALLERGIC
     Dosage: 1 DF; BID; PO
     Route: 048
     Dates: start: 20081001
  2. ALCOHOL [Concomitant]

REACTIONS (2)
  - ALCOHOL USE [None]
  - ERECTILE DYSFUNCTION [None]
